FAERS Safety Report 4825796-6 (Version None)
Quarter: 2005Q4

REPORT INFORMATION
  Report Type: 
  Country: None (occurrence: None)
  Receive Date: 20051111
  Receipt Date: 20051031
  Transmission Date: 20060501
  Serious: Yes (Death)
  Sender: FDA-Public Use
  Company Number: FR-GLAXOSMITHKLINE-B0398787A

PATIENT

DRUGS (1)
  1. DEROXAT [Suspect]
     Indication: OBSESSIVE-COMPULSIVE DISORDER
     Dosage: 2UNIT PER DAY
     Dates: end: 20050622

REACTIONS (3)
  - DRUG EXPOSURE DURING PREGNANCY [None]
  - HYPOXIA [None]
  - INTRA-UTERINE DEATH [None]
